FAERS Safety Report 26169260 (Version 1)
Quarter: 2025Q4

REPORT INFORMATION
  Report Type: Spontaneous
  Country: IN (occurrence: IN)
  Receive Date: 20251217
  Receipt Date: 20251217
  Transmission Date: 20260117
  Serious: Yes (Death, Hospitalization)
  Sender: MYLAN
  Company Number: IN-MYLANLABS-2025M1107276

PATIENT
  Age: 17 Year
  Sex: Female

DRUGS (20)
  1. DEXAMETHASONE [Suspect]
     Active Substance: DEXAMETHASONE
     Indication: Lung infiltration
     Dosage: UNK, ON DAY 19
  2. DEXAMETHASONE [Suspect]
     Active Substance: DEXAMETHASONE
     Dosage: UNK, ON DAY 19
     Route: 065
  3. DEXAMETHASONE [Suspect]
     Active Substance: DEXAMETHASONE
     Dosage: UNK, ON DAY 19
     Route: 065
  4. DEXAMETHASONE [Suspect]
     Active Substance: DEXAMETHASONE
     Dosage: UNK, ON DAY 19
  5. METHYLPREDNISOLONE [Suspect]
     Active Substance: METHYLPREDNISOLONE
     Indication: Lung infiltration
     Dosage: UNK
  6. METHYLPREDNISOLONE [Suspect]
     Active Substance: METHYLPREDNISOLONE
     Dosage: UNK
     Route: 065
  7. METHYLPREDNISOLONE [Suspect]
     Active Substance: METHYLPREDNISOLONE
     Dosage: UNK
     Route: 065
  8. METHYLPREDNISOLONE [Suspect]
     Active Substance: METHYLPREDNISOLONE
     Dosage: UNK
  9. EPINEPHRINE [Suspect]
     Active Substance: EPINEPHRINE
     Indication: Cardiac arrest
     Dosage: UNK
  10. EPINEPHRINE [Suspect]
     Active Substance: EPINEPHRINE
     Dosage: UNK
     Route: 065
  11. EPINEPHRINE [Suspect]
     Active Substance: EPINEPHRINE
     Dosage: UNK
     Route: 065
  12. EPINEPHRINE [Suspect]
     Active Substance: EPINEPHRINE
     Dosage: UNK
  13. ATROPINE [Suspect]
     Active Substance: ATROPINE
     Indication: Cardiac arrest
     Dosage: UNK
  14. ATROPINE [Suspect]
     Active Substance: ATROPINE
     Dosage: UNK
     Route: 065
  15. ATROPINE [Suspect]
     Active Substance: ATROPINE
     Dosage: UNK
     Route: 065
  16. ATROPINE [Suspect]
     Active Substance: ATROPINE
     Dosage: UNK
  17. NOREPINEPHRINE BITARTRATE [Concomitant]
     Active Substance: NOREPINEPHRINE BITARTRATE
     Indication: Lung infiltration
     Dosage: UNK, BY DAY 21 IT WAS TAPERED OFF
  18. NOREPINEPHRINE BITARTRATE [Concomitant]
     Active Substance: NOREPINEPHRINE BITARTRATE
     Dosage: UNK, BY DAY 21 IT WAS TAPERED OFF
     Route: 065
  19. NOREPINEPHRINE BITARTRATE [Concomitant]
     Active Substance: NOREPINEPHRINE BITARTRATE
     Dosage: UNK, BY DAY 21 IT WAS TAPERED OFF
     Route: 065
  20. NOREPINEPHRINE BITARTRATE [Concomitant]
     Active Substance: NOREPINEPHRINE BITARTRATE
     Dosage: UNK, BY DAY 21 IT WAS TAPERED OFF

REACTIONS (1)
  - Drug ineffective [Fatal]
